FAERS Safety Report 8482052-5 (Version None)
Quarter: 2012Q2

REPORT INFORMATION
  Report Type: 
  Country: None (occurrence: None)
  Receive Date: 20120626
  Receipt Date: 20120626
  Transmission Date: 20120825
  Serious: Yes (Other)
  Sender: FDA-Public Use
  Company Number: None

PATIENT
  Age: 58 Year
  Sex: Male
  Weight: 113.3993 kg

DRUGS (2)
  1. CELEBREX [Suspect]
     Indication: PAIN
     Dosage: 1 DAILY PO
     Route: 048
     Dates: start: 20120513, end: 20120513
  2. CELEBREX [Suspect]
     Indication: OSTEOARTHRITIS
     Dosage: 1 DAILY PO
     Route: 048
     Dates: start: 20120513, end: 20120513

REACTIONS (5)
  - CONTUSION [None]
  - VASCULAR INJURY [None]
  - JOINT SWELLING [None]
  - SKIN TIGHTNESS [None]
  - ARTHRITIS [None]
